FAERS Safety Report 10081532 (Version 1)
Quarter: 2014Q2

REPORT INFORMATION
  Report Type: Spontaneous
  Country: US (occurrence: US)
  Receive Date: 20140416
  Receipt Date: 20140416
  Transmission Date: 20141212
  Serious: Yes (Other)
  Sender: FDA-Public Use
  Company Number: US-PFIZER INC-2014103828

PATIENT
  Age: 61 Year
  Sex: Male
  Weight: 78.01 kg

DRUGS (3)
  1. VIAGRA [Suspect]
     Indication: ERECTILE DYSFUNCTION
     Dosage: 50 MG, UNK
     Route: 048
  2. VIAGRA [Suspect]
     Dosage: 100 MG, UNK
     Route: 048
     Dates: end: 2005
  3. INSULIN [Concomitant]
     Indication: DIABETES MELLITUS
     Dosage: UNK

REACTIONS (2)
  - Cerebrovascular accident [Unknown]
  - Hypertension [Unknown]
